FAERS Safety Report 9541086 (Version 1)
Quarter: 2013Q3

REPORT INFORMATION
  Report Type: Report from Study
  Country: DE (occurrence: DE)
  Receive Date: 20130923
  Receipt Date: 20130923
  Transmission Date: 20140515
  Serious: Yes (Other)
  Sender: FDA-Public Use
  Company Number: DE-ROCHE-1278482

PATIENT
  Age: 49 Year
  Sex: Male

DRUGS (8)
  1. PEGASYS [Suspect]
     Indication: HEPATITIS C
     Route: 065
  2. PEGASYS [Suspect]
     Route: 065
     Dates: start: 2006, end: 2006
  3. PEGASYS [Suspect]
     Route: 065
     Dates: start: 2009, end: 2009
  4. RIBAVIRIN [Suspect]
     Indication: HEPATITIS C
     Route: 065
  5. RIBAVIRIN [Suspect]
     Route: 065
     Dates: start: 2006, end: 2006
  6. RIBAVIRIN [Suspect]
     Route: 065
     Dates: start: 2009, end: 2009
  7. TELAPREVIR [Suspect]
     Indication: HEPATITIS C
     Route: 065
  8. AMLODIPINE [Concomitant]
     Indication: HYPERTENSION
     Route: 065

REACTIONS (7)
  - Leukopenia [Unknown]
  - Hypertensive crisis [Unknown]
  - Viral infection [Unknown]
  - Erythema nodosum [Unknown]
  - Gastrointestinal disorder [Unknown]
  - No therapeutic response [Unknown]
  - Haemoglobin decreased [Unknown]
